FAERS Safety Report 12880550 (Version 1)
Quarter: 2016Q4

REPORT INFORMATION
  Report Type: Spontaneous
  Country: US (occurrence: US)
  Receive Date: 20161025
  Receipt Date: 20161025
  Transmission Date: 20170207
  Serious: No
  Sender: FDA-Public Use
  Company Number: None

PATIENT
  Sex: Male

DRUGS (1)
  1. COMPAZINE [Suspect]
     Active Substance: PROCHLORPERAZINE MALEATE
     Dosage: COMPAZINE PROCHLORPERAZINE - DOSAGE FORM - INJECTABLE

REACTIONS (5)
  - Trismus [None]
  - Dystonia [None]
  - Lip swelling [None]
  - Swollen tongue [None]
  - Dyspnoea [None]
